FAERS Safety Report 7146646-1 (Version None)
Quarter: 2010Q4

REPORT INFORMATION
  Report Type: 
  Country: None (occurrence: None)
  Receive Date: 20101208
  Receipt Date: 20101130
  Transmission Date: 20110411
  Serious: Yes (Hospitalization)
  Sender: FDA-Public Use
  Company Number: JP-ABBOTT-10P-087-0689245-00

PATIENT
  Age: 83 Year
  Sex: Male

DRUGS (3)
  1. LEUPROLIDE ACETATE [Suspect]
     Indication: PROSTATE CANCER STAGE IV
     Route: 058
     Dates: start: 20080419, end: 20080419
  2. BASEN [Concomitant]
     Indication: DIABETES MELLITUS
     Route: 048
     Dates: end: 20080516
  3. ETHINYL ESTRADIOL [Concomitant]
     Indication: PROSTATE CANCER STAGE IV
     Route: 048
     Dates: end: 20080516

REACTIONS (1)
  - ANGINA PECTORIS [None]
